FAERS Safety Report 7501195-3 (Version None)
Quarter: 2011Q2

REPORT INFORMATION
  Report Type: 
  Country: None (occurrence: None)
  Receive Date: 20110524
  Receipt Date: 20110510
  Transmission Date: 20111010
  Serious: Yes (Life-Threatening, Hospitalization)
  Sender: FDA-Public Use
  Company Number: FR-UCBSA-024277

PATIENT
  Sex: Female

DRUGS (7)
  1. KEPPRA [Suspect]
     Indication: EPILEPSY
     Route: 042
     Dates: start: 20100902, end: 20101001
  2. GENTALLINE (GENTAMICINE) [Concomitant]
     Indication: PNEUMONIA
     Route: 042
     Dates: start: 20100914, end: 20100917
  3. LEXOMIL [Concomitant]
     Indication: AGITATION
     Dates: start: 20100929, end: 20101003
  4. LOXAPINE HCL [Suspect]
     Indication: AGITATION
     Route: 042
     Dates: start: 20100913, end: 20101001
  5. FLAMMAZINE [Suspect]
     Indication: INFECTION PROPHYLAXIS
     Route: 061
     Dates: start: 20100904, end: 20100910
  6. EFFEXOR [Concomitant]
     Indication: DEPRESSION
     Dosage: ORAL/IV
     Dates: start: 20080101
  7. LOXAPINE HCL [Suspect]
     Indication: PSYCHOTIC DISORDER
     Route: 042
     Dates: start: 20100913, end: 20101001

REACTIONS (2)
  - TOXIC EPIDERMAL NECROLYSIS [None]
  - SEPTIC SHOCK [None]
